FAERS Safety Report 4850605-9 (Version None)
Quarter: 2005Q4

REPORT INFORMATION
  Report Type: 
  Country: None (occurrence: None)
  Receive Date: 20051212
  Receipt Date: 20050512
  Transmission Date: 20060501
  Serious: Yes (Hospitalization)
  Sender: FDA-Public Use
  Company Number: FR-AMGEN-UK132750

PATIENT
  Age: 77 Year
  Sex: Male

DRUGS (1)
  1. ARANESP [Suspect]
     Indication: ANAEMIA OF MALIGNANT DISEASE
     Route: 058
     Dates: end: 20050401

REACTIONS (6)
  - C-REACTIVE PROTEIN INCREASED [None]
  - EXFOLIATIVE RASH [None]
  - LICHENIFICATION [None]
  - PRURITUS [None]
  - RASH ERYTHEMATOUS [None]
  - XEROSIS [None]
